FAERS Safety Report 17386481 (Version 1)
Quarter: 2020Q1

REPORT INFORMATION
  Report Type: Spontaneous
  Country: NL (occurrence: NL)
  Receive Date: 20200206
  Receipt Date: 20200206
  Transmission Date: 20200409
  Serious: Yes (Life-Threatening)
  Sender: FDA-Public Use
  Company Number: NL-PFIZER INC-2020047091

PATIENT
  Age: 66 Year
  Sex: Female
  Weight: 81 kg

DRUGS (5)
  1. SEROQUEL [Concomitant]
     Active Substance: QUETIAPINE FUMARATE
  2. CHAMPIX [Suspect]
     Active Substance: VARENICLINE TARTRATE
     Indication: SMOKING CESSATION THERAPY
     Dosage: 0.5 MG, UNK (FIRST 1 WEEK STARTUP WITH 0.5MG)
     Route: 048
  3. CHAMPIX [Suspect]
     Active Substance: VARENICLINE TARTRATE
     Dosage: 1 MG, DAILY
     Route: 048
  4. CHAMPIX [Suspect]
     Active Substance: VARENICLINE TARTRATE
     Dosage: 1 MG, DAILY
     Route: 050
     Dates: start: 201912, end: 201912
  5. CHAMPIX [Suspect]
     Active Substance: VARENICLINE TARTRATE
     Dosage: 0.5 MG, UNK (FIRST 1 WEEK STARTUP WITH 0.5MG)
     Route: 050
     Dates: start: 201912, end: 201912

REACTIONS (3)
  - Psychotic disorder [Recovered/Resolved with Sequelae]
  - Depressed mood [Unknown]
  - Disease recurrence [Recovered/Resolved with Sequelae]

NARRATIVE: CASE EVENT DATE: 20191220
